FAERS Safety Report 21735516 (Version 1)
Quarter: 2022Q4

REPORT INFORMATION
  Report Type: Spontaneous
  Country: US (occurrence: None)
  Receive Date: 20221213
  Receipt Date: 20221213
  Transmission Date: 20230113
  Serious: Yes (Life-Threatening, Hospitalization)
  Sender: FDA-Public Use
  Company Number: None

PATIENT
  Age: 26 Year
  Sex: Female
  Weight: 58.5 kg

DRUGS (1)
  1. DIETARY SUPPLEMENT\HERBALS [Suspect]
     Active Substance: DIETARY SUPPLEMENT\HERBALS
     Route: 048
     Dates: start: 20221209, end: 20221209

REACTIONS (6)
  - Nausea [None]
  - Vomiting [None]
  - Respiratory disorder [None]
  - Mental status changes [None]
  - Blood sodium decreased [None]
  - Seizure [None]

NARRATIVE: CASE EVENT DATE: 20221209
